FAERS Safety Report 7512928-4 (Version None)
Quarter: 2011Q2

REPORT INFORMATION
  Report Type: 
  Country: None (occurrence: None)
  Receive Date: 20110531
  Receipt Date: 20101215
  Transmission Date: 20111010
  Serious: No
  Sender: FDA-Public Use
  Company Number: US-NOVEN-ALL1-2010-06057

PATIENT
  Sex: Male
  Weight: 39.5 kg

DRUGS (2)
  1. DAYTRANA [Suspect]
     Dosage: 20 UNK, 1X/DAY:QD
     Route: 062
     Dates: start: 20100101
  2. DAYTRANA [Suspect]
     Dosage: 10 MG, 1X/DAY:QD
     Route: 062
     Dates: start: 20100401, end: 20100101

REACTIONS (1)
  - APPLICATION SITE ERYTHEMA [None]
